FAERS Safety Report 9165690 (Version 1)
Quarter: 2013Q1

REPORT INFORMATION
  Report Type: Spontaneous
  Country: IT (occurrence: IT)
  Receive Date: 20130315
  Receipt Date: 20130315
  Transmission Date: 20140127
  Serious: Yes (Hospitalization)
  Sender: FDA-Public Use
  Company Number: IT-JNJFOC-20130302670

PATIENT
  Age: 55 Year
  Sex: Male

DRUGS (1)
  1. SERENASE [Suspect]
     Indication: PRODUCT USED FOR UNKNOWN INDICATION
     Route: 048
     Dates: start: 20130301, end: 20130301

REACTIONS (2)
  - Slow speech [Recovering/Resolving]
  - Contraindication to medical treatment [Unknown]
